FAERS Safety Report 4559468-2 (Version None)
Quarter: 2005Q1

REPORT INFORMATION
  Report Type: 
  Country: None (occurrence: None)
  Receive Date: 20050119
  Receipt Date: 20050107
  Transmission Date: 20050727
  Serious: Yes (Hospitalization)
  Sender: FDA-Public Use
  Company Number: 061-0981-M0000030

PATIENT
  Age: 76 Year
  Sex: Male
  Weight: 67.3 kg

DRUGS (7)
  1. ATORVASTATIN        (ATORVASTATIN) [Suspect]
     Indication: HYPERLIPIDAEMIA
     Dosage: 10 MG (DAILY), ORAL
     Route: 048
     Dates: start: 19990406, end: 19990614
  2. ASPIRIN [Concomitant]
  3. ISOSORBIDE MONONITRATE [Concomitant]
  4. METHDILAZINE HYDROCHLORIDE           (METHDILAZINE HYDROCHLORIDE) [Concomitant]
  5. MAGNESIUM  (MAGNESIUM) [Concomitant]
  6. OMEPRAZOLE [Concomitant]
  7. TRINITRATE SUBLINGUAL SPRAY         (GLYCERYL TRINITRATE) [Concomitant]

REACTIONS (4)
  - CONDITION AGGRAVATED [None]
  - INTERVERTEBRAL DISC DISORDER [None]
  - KYPHOSIS [None]
  - VERTIGO POSITIONAL [None]
